FAERS Safety Report 21001450 (Version 3)
Quarter: 2022Q3

REPORT INFORMATION
  Report Type: Report from Study
  Country: US (occurrence: US)
  Receive Date: 20220624
  Receipt Date: 20220930
  Transmission Date: 20221027
  Serious: No
  Sender: FDA-Public Use
  Company Number: US-NOVARTISTESTPH-NVSC2022US143999

PATIENT
  Age: 5 Year
  Sex: Female
  Weight: 46 kg

DRUGS (5)
  1. ILARIS [Suspect]
     Active Substance: CANAKINUMAB
     Indication: Still^s disease
     Dosage: 60 MG, Q4W
     Route: 058
     Dates: start: 20200912
  2. ILARIS [Suspect]
     Active Substance: CANAKINUMAB
     Dosage: 60 MG, QMO
     Route: 058
     Dates: start: 202009
  3. ILARIS [Suspect]
     Active Substance: CANAKINUMAB
     Dosage: UNK
     Route: 065
     Dates: start: 20220824
  4. ILARIS [Suspect]
     Active Substance: CANAKINUMAB
     Dosage: 60 MG, QMO
     Route: 058
     Dates: start: 202209, end: 20220922
  5. ILARIS [Suspect]
     Active Substance: CANAKINUMAB
     Dosage: 60 MG (RIGHT THIGH)
     Route: 058
     Dates: start: 20220922

REACTIONS (2)
  - Pyrexia [Unknown]
  - Rash [Recovering/Resolving]

NARRATIVE: CASE EVENT DATE: 20220601
